FAERS Safety Report 10816005 (Version 1)
Quarter: 2015Q1

REPORT INFORMATION
  Report Type: Report from Study
  Country: US (occurrence: US)
  Receive Date: 20150218
  Receipt Date: 20150218
  Transmission Date: 20150721
  Serious: Yes (Hospitalization)
  Sender: FDA-Public Use
  Company Number: US-ABBVIE-14K-163-1281990-00

PATIENT
  Age: 60 Year
  Sex: Female

DRUGS (2)
  1. HUMIRA [Suspect]
     Active Substance: ADALIMUMAB
     Dates: start: 20140907
  2. HUMIRA [Suspect]
     Active Substance: ADALIMUMAB
     Indication: CROHN^S DISEASE
     Dates: start: 20140804

REACTIONS (11)
  - Thyroidectomy [Unknown]
  - Surgery [Not Recovered/Not Resolved]
  - Respiratory disorder [Recovered/Resolved]
  - Diarrhoea [Recovering/Resolving]
  - Rhinorrhoea [Recovered/Resolved]
  - Nausea [Recovering/Resolving]
  - Incorrect dose administered [Unknown]
  - Malaise [Recovering/Resolving]
  - Gastroenteritis viral [Recovering/Resolving]
  - Device issue [Unknown]
  - Abdominal pain upper [Recovering/Resolving]

NARRATIVE: CASE EVENT DATE: 20140808
